FAERS Safety Report 9003955 (Version 1)
Quarter: 2013Q1

REPORT INFORMATION
  Report Type: Spontaneous
  Country: CA (occurrence: CA)
  Receive Date: 20130109
  Receipt Date: 20130109
  Transmission Date: 20140127
  Serious: Yes (Hospitalization)
  Sender: FDA-Public Use
  Company Number: CA-AMGEN-CANSP2012075453

PATIENT
  Age: 72 Year
  Sex: Female

DRUGS (3)
  1. ENBREL [Suspect]
     Indication: RHEUMATOID ARTHRITIS
     Dosage: 1XWEEK
     Route: 058
     Dates: start: 20120919
  2. TYLENOL /00020001/ [Concomitant]
     Dosage: UNK
  3. ELMARINE [Concomitant]
     Dosage: UNK

REACTIONS (1)
  - Localised infection [Not Recovered/Not Resolved]
